FAERS Safety Report 6116919-X (Version None)
Quarter: 2009Q1

REPORT INFORMATION
  Report Type: 
  Country: None (occurrence: None)
  Receive Date: 20090314
  Receipt Date: 20090226
  Transmission Date: 20090719
  Serious: No
  Sender: FDA-Public Use
  Company Number: PR-ABBOTT-09P-131-0501013-00

PATIENT
  Sex: Female
  Weight: 66.738 kg

DRUGS (5)
  1. HUMIRA [Suspect]
     Indication: CROHN'S DISEASE
     Route: 058
     Dates: start: 20081030, end: 20090126
  2. PENTASA [Concomitant]
     Indication: CROHN'S DISEASE
     Route: 048
  3. AVALIDE [Concomitant]
     Indication: HYPERTENSION
     Route: 048
  4. CALTRATE + VITAMIN D [Concomitant]
     Indication: OSTEOPENIA
     Route: 048
  5. FOSAMAX [Concomitant]
     Indication: OSTEOPENIA
     Route: 048

REACTIONS (5)
  - ARTHRALGIA [None]
  - BACK PAIN [None]
  - CHEST PAIN [None]
  - JOINT SWELLING [None]
  - NECK PAIN [None]
